FAERS Safety Report 4596273-5 (Version None)
Quarter: 2005Q1

REPORT INFORMATION
  Report Type: 
  Country: None (occurrence: None)
  Receive Date: 20050224
  Receipt Date: 20050210
  Transmission Date: 20050727
  Serious: No
  Sender: FDA-Public Use
  Company Number: 200501277

PATIENT
  Age: 61 Year
  Sex: Female

DRUGS (2)
  1. ALESION (EPINASTINE) [Suspect]
     Indication: DRUG ERUPTION
     Dosage: 20 MG QD PO
     Route: 048
     Dates: start: 20050109, end: 20050109
  2. PONTAL [Concomitant]

REACTIONS (4)
  - BLOOD PRESSURE SYSTOLIC DECREASED [None]
  - HEART RATE DECREASED [None]
  - LOSS OF CONSCIOUSNESS [None]
  - NERVOUS SYSTEM DISORDER [None]
